FAERS Safety Report 7301331-8 (Version None)
Quarter: 2011Q1

REPORT INFORMATION
  Report Type: 
  Country: None (occurrence: None)
  Receive Date: 20110113
  Receipt Date: 20101022
  Transmission Date: 20110831
  Serious: No
  Sender: FDA-Public Use
  Company Number: US-001360

PATIENT
  Sex: Male
  Weight: 24.9478 kg

DRUGS (1)
  1. KUVAN [Suspect]
     Indication: PHENYLKETONURIA
     Dosage: (500 MG QD ORAL)
     Route: 048
     Dates: start: 20100828

REACTIONS (1)
  - NO THERAPEUTIC RESPONSE [None]
